FAERS Safety Report 9972758 (Version 1)
Quarter: 2014Q1

REPORT INFORMATION
  Report Type: Spontaneous
  Country: US (occurrence: None)
  Receive Date: 20140128
  Receipt Date: 20140128
  Transmission Date: 20141002
  Serious: Yes (Hospitalization)
  Sender: FDA-Public Use
  Company Number: A-US2013-88999

PATIENT
  Age: 50 Year
  Sex: Female

DRUGS (2)
  1. TRACLEER (BOSENTAN) TABLET [Suspect]
     Indication: PULMONARY ARTERIAL HYPERTENSION
     Route: 048
     Dates: start: 201106
  2. TYVASO (TREPROSTINIL SODIUM) [Concomitant]

REACTIONS (3)
  - Fluid retention [None]
  - Drug dose omission [None]
  - Oedema [None]
